FAERS Safety Report 25350654 (Version 1)
Quarter: 2025Q2

REPORT INFORMATION
  Report Type: Spontaneous
  Country: BR (occurrence: BR)
  Receive Date: 20250523
  Receipt Date: 20250523
  Transmission Date: 20250716
  Serious: Yes (Death)
  Sender: NOVARTIS
  Company Number: BR-002147023-NVSC2025BR082862

PATIENT
  Sex: Male
  Weight: 80 kg

DRUGS (1)
  1. ELTROMBOPAG OLAMINE [Suspect]
     Active Substance: ELTROMBOPAG OLAMINE
     Indication: Product used for unknown indication
     Dosage: 1 DOSAGE FORM, QD (14 COATED TABLETS) (1 TABLET A DAY)
     Route: 065

REACTIONS (2)
  - Pneumonia bacterial [Fatal]
  - Influenza [Unknown]
